FAERS Safety Report 7777795-2 (Version None)
Quarter: 2011Q3

REPORT INFORMATION
  Report Type: 
  Country: None (occurrence: None)
  Receive Date: 20110926
  Receipt Date: 20110919
  Transmission Date: 20111222
  Serious: No
  Sender: FDA-Public Use
  Company Number: US-BIOGENIDEC-2011BI001371

PATIENT
  Age: 50 Year
  Sex: Female

DRUGS (5)
  1. TYSABRI [Suspect]
     Indication: MULTIPLE SCLEROSIS
     Route: 042
     Dates: start: 20080122
  2. CIPRO EAR DROPS [Concomitant]
     Indication: TRIGEMINAL NEURALGIA
  3. TEGRETOL [Concomitant]
     Indication: TRIGEMINAL NEURALGIA
     Dates: start: 20070101
  4. EAR DROPS (NOS) [Concomitant]
     Indication: TRIGEMINAL NEURALGIA
  5. TEGRETOL [Concomitant]
     Indication: CONVULSION
     Dates: start: 20070101

REACTIONS (11)
  - FALL [None]
  - ARTHRALGIA [None]
  - HIP FRACTURE [None]
  - PAIN IN EXTREMITY [None]
  - MUSCULAR WEAKNESS [None]
  - MUSCLE STRAIN [None]
  - MORTON'S NEUROMA [None]
  - MUSCLE SPASMS [None]
  - NECK PAIN [None]
  - FRACTURED ISCHIUM [None]
  - MIDDLE INSOMNIA [None]
